FAERS Safety Report 9459694 (Version 1)
Quarter: 2013Q3

REPORT INFORMATION
  Report Type: Spontaneous
  Country: CN (occurrence: CN)
  Receive Date: 20130815
  Receipt Date: 20130815
  Transmission Date: 20140515
  Serious: Yes (Other)
  Sender: FDA-Public Use
  Company Number: CN-PERRIGO-13CN008211

PATIENT
  Age: 62 Year
  Sex: Male

DRUGS (7)
  1. GENTAMICIN SULFATE RX 0.1% 1A5 [Suspect]
     Indication: ANTIBIOTIC PROPHYLAXIS
     Dosage: UNK, UNK
     Route: 061
     Dates: start: 200603
  2. VANCOMYCIN [Suspect]
     Indication: DEVICE RELATED INFECTION
     Dosage: UNK, UNK
     Route: 065
     Dates: start: 2008
  3. VANCOMYCIN [Suspect]
     Indication: STAPHYLOCOCCAL INFECTION
  4. VANCOMYCIN [Suspect]
     Indication: CORYNEBACTERIUM INFECTION
  5. RIFAMPICIN [Suspect]
     Indication: DEVICE RELATED INFECTION
     Dosage: UNK, UNK
     Route: 065
     Dates: start: 2008
  6. RIFAMPICIN [Suspect]
     Indication: STAPHYLOCOCCAL INFECTION
  7. RIFAMPICIN [Suspect]
     Indication: CORYNEBACTERIUM INFECTION

REACTIONS (4)
  - Mycobacterial peritonitis [Recovered/Resolved]
  - Mycobacterium fortuitum infection [Recovered/Resolved]
  - Corynebacterium infection [Recovered/Resolved]
  - Staphylococcal infection [Recovered/Resolved]
